FAERS Safety Report 25933255 (Version 1)
Quarter: 2025Q4

REPORT INFORMATION
  Report Type: Spontaneous
  Country: CA (occurrence: CA)
  Receive Date: 20251017
  Receipt Date: 20251017
  Transmission Date: 20260118
  Serious: Yes (Other)
  Sender: SANDOZ
  Company Number: CA-SANDOZ-SDZ2025CA076729

PATIENT
  Age: 15 Year
  Sex: Female

DRUGS (2)
  1. COLCHICINE [Suspect]
     Active Substance: COLCHICINE
     Indication: Suicide attempt
     Dosage: 27.5 MG
     Route: 048
  2. PANTOPRAZOLE [Suspect]
     Active Substance: PANTOPRAZOLE
     Indication: Suicide attempt
     Dosage: 240 MG
     Route: 065

REACTIONS (8)
  - Multiple organ dysfunction syndrome [Not Recovered/Not Resolved]
  - Coagulopathy [Not Recovered/Not Resolved]
  - Lactic acidosis [Not Recovered/Not Resolved]
  - Leukocytosis [Not Recovered/Not Resolved]
  - Hepatic function abnormal [Not Recovered/Not Resolved]
  - Pancytopenia [Not Recovered/Not Resolved]
  - Toxicity to various agents [Not Recovered/Not Resolved]
  - Intentional overdose [Not Recovered/Not Resolved]
